FAERS Safety Report 6246414-9 (Version None)
Quarter: 2009Q2

REPORT INFORMATION
  Report Type: 
  Country: None (occurrence: None)
  Receive Date: 20090626
  Receipt Date: 20090616
  Transmission Date: 20091009
  Serious: Yes (Hospitalization, Other)
  Sender: FDA-Public Use
  Company Number: US-ROCHE-638494

PATIENT
  Sex: Male

DRUGS (5)
  1. ROCEPHIN [Suspect]
     Indication: DRUG USE FOR UNKNOWN INDICATION
     Route: 065
     Dates: start: 20060528
  2. VANCOMYCIN [Suspect]
     Route: 042
     Dates: start: 20060524
  3. TYGACIL [Concomitant]
  4. DIFLUCAN [Concomitant]
  5. PRIMAXIN [Concomitant]

REACTIONS (12)
  - CHILLS [None]
  - DISSEMINATED INTRAVASCULAR COAGULATION [None]
  - GASTROENTERITIS [None]
  - GASTROINTESTINAL HAEMORRHAGE [None]
  - HYPONATRAEMIA [None]
  - HYPOTENSION [None]
  - PYREXIA [None]
  - RENAL FAILURE ACUTE [None]
  - RHABDOMYOLYSIS [None]
  - SEPSIS SYNDROME [None]
  - STEVENS-JOHNSON SYNDROME [None]
  - VOMITING [None]
